FAERS Safety Report 24316410 (Version 1)
Quarter: 2024Q3

REPORT INFORMATION
  Report Type: Spontaneous
  Country: TW (occurrence: TW)
  Receive Date: 20240913
  Receipt Date: 20240913
  Transmission Date: 20241016
  Serious: Yes (Hospitalization)
  Sender: ABBVIE
  Company Number: US-ABBVIE-5914189

PATIENT
  Age: 66 Year
  Sex: Male
  Weight: 72 kg

DRUGS (8)
  1. LEUPROLIDE ACETATE [Suspect]
     Active Substance: ISOPROPYL ALCOHOL\LEUPROLIDE ACETATE
     Indication: Prostate cancer
     Route: 065
     Dates: start: 20231221
  2. STROCAIN (ALUMINIUM HYDROXIDE, CALCIUM CARBONATE, MAGNESIUM CARBONA... [Concomitant]
     Indication: Oesophageal ulcer
     Dates: start: 20230519
  3. FAMOTIDINE [Concomitant]
     Active Substance: FAMOTIDINE
     Indication: Oesophageal ulcer
     Dates: start: 20230519
  4. ABIRATERONE [Suspect]
     Active Substance: ABIRATERONE
     Indication: Prostate cancer
     Dosage: INITIAL TREATMENT PERIOD
     Route: 065
     Dates: start: 20230511
  5. ABIRATERONE [Suspect]
     Active Substance: ABIRATERONE
     Indication: Prostate cancer
     Dosage: CONTINUED ACCESS PERIOD
     Route: 065
     Dates: start: 20240314, end: 20240811
  6. PREDNISOLONE [Suspect]
     Active Substance: PREDNISOLONE
     Indication: Prostate cancer
     Dosage: INITIAL TREATMENT PERIOD
     Route: 065
     Dates: start: 20230511
  7. PREDNISOLONE [Suspect]
     Active Substance: PREDNISOLONE
     Indication: Prostate cancer
     Dosage: CONTINUED ACCESS PERIOD
     Route: 065
     Dates: start: 20240314, end: 20240811
  8. ABEMACICLIB [Suspect]
     Active Substance: ABEMACICLIB
     Indication: Prostate cancer
     Dosage: PH3-ABEMACICLIB-MHSPC ?DURATION: 9 MONTHS 16 DAYS?INITIAL TREATMENT PERIOD
     Route: 065
     Dates: start: 20230511, end: 20240226

REACTIONS (2)
  - Cervical cord compression [Recovering/Resolving]
  - Muscular weakness [Unknown]

NARRATIVE: CASE EVENT DATE: 20240808
